FAERS Safety Report 6576298-0 (Version None)
Quarter: 2010Q1

REPORT INFORMATION
  Report Type: 
  Country: None (occurrence: None)
  Receive Date: 20100210
  Receipt Date: 20100201
  Transmission Date: 20100710
  Serious: Yes (Hospitalization)
  Sender: FDA-Public Use
  Company Number: US-BIOGENIDEC-2010BI003686

PATIENT
  Age: 39 Year
  Sex: Female
  Weight: 72 kg

DRUGS (5)
  1. TYSABRI [Suspect]
     Indication: MULTIPLE SCLEROSIS
     Route: 042
     Dates: start: 20071219, end: 20090713
  2. TYSABRI [Suspect]
     Route: 042
     Dates: start: 20100113
  3. GABAPENTIN [Concomitant]
     Indication: NEUROPATHY PERIPHERAL
     Dates: start: 20030404
  4. CYMBALTA [Concomitant]
     Indication: DEPRESSION
     Dates: start: 20080129
  5. DETROL [Concomitant]

REACTIONS (2)
  - ANKLE FRACTURE [None]
  - CELLULITIS [None]
